FAERS Safety Report 24120925 (Version 1)
Quarter: 2024Q3

REPORT INFORMATION
  Report Type: Report from Study
  Country: DE (occurrence: DE)
  Receive Date: 20240722
  Receipt Date: 20240722
  Transmission Date: 20241017
  Serious: No
  Sender: AEGERION
  Company Number: DE-AMRYT PHARMACEUTICALS DAC-AEGR007267

PATIENT

DRUGS (1)
  1. METRELEPTIN [Suspect]
     Active Substance: METRELEPTIN
     Indication: Congenital generalised lipodystrophy
     Dosage: UNK

REACTIONS (1)
  - Breast neoplasm [Unknown]

NARRATIVE: CASE EVENT DATE: 20240601
